FAERS Safety Report 8528561-1 (Version None)
Quarter: 2012Q3

REPORT INFORMATION
  Report Type: 
  Country: None (occurrence: None)
  Receive Date: 20120723
  Receipt Date: 20120712
  Transmission Date: 20120928
  Serious: Yes (Hospitalization)
  Sender: FDA-Public Use
  Company Number: US-BIOGENIDEC-2012BI025461

PATIENT
  Sex: Female

DRUGS (1)
  1. TYSABRI [Suspect]
     Indication: MULTIPLE SCLEROSIS
     Route: 042
     Dates: start: 20100902

REACTIONS (5)
  - GAIT DISTURBANCE [None]
  - HYPOAESTHESIA [None]
  - VISION BLURRED [None]
  - TREMOR [None]
  - BLADDER DISORDER [None]
